FAERS Safety Report 23436757 (Version 16)
Quarter: 2024Q4

REPORT INFORMATION
  Report Type: Report from Study
  Country: AT (occurrence: AT)
  Receive Date: 20240124
  Receipt Date: 20241226
  Transmission Date: 20250115
  Serious: Yes (Hospitalization, Other)
  Sender: AMGEN
  Company Number: AT-AMGEN-AUTSP2024011752

PATIENT
  Age: 37 Year
  Sex: Female

DRUGS (208)
  1. TRASTUZUMAB [Suspect]
     Active Substance: TRASTUZUMAB
     Indication: HER2 positive breast cancer
     Dosage: 120 MILLIGRAM, QMO (20 MILLIGRAM IN 1 MONTH)
     Route: 065
     Dates: start: 20161201
  2. TRASTUZUMAB [Suspect]
     Active Substance: TRASTUZUMAB
     Indication: Prophylaxis
  3. XGEVA [Suspect]
     Active Substance: DENOSUMAB
     Indication: Prophylaxis
     Dosage: 120 MILLIGRAM, QMO
     Route: 058
     Dates: start: 20161201
  4. ARANESP [Suspect]
     Active Substance: DARBEPOETIN ALFA
     Indication: Anaemia prophylaxis
     Dosage: 150 MICROGRAM, QWK
     Route: 058
     Dates: start: 20161201, end: 201701
  5. ARANESP [Suspect]
     Active Substance: DARBEPOETIN ALFA
     Dosage: 150 MICROGRAM, QMO
     Route: 058
     Dates: start: 20161201, end: 201701
  6. HERCEPTIN [Suspect]
     Active Substance: TRASTUZUMAB
     Indication: HER2 positive breast cancer
     Dosage: 8 MICROGRAM/KILOGRAM, Q3WK CUMULATIVE DOSE 104 MG/KG
     Route: 040
     Dates: start: 20161020, end: 20170112
  7. HERCEPTIN [Suspect]
     Active Substance: TRASTUZUMAB
     Indication: Breast cancer metastatic
     Dosage: 6 MICROGRAM/KILOGRAM, Q3WK
     Route: 040
     Dates: start: 20170202, end: 20180108
  8. HERCEPTIN [Suspect]
     Active Substance: TRASTUZUMAB
     Dosage: 6 MICROGRAM/KILOGRAM, Q3WK
     Route: 040
     Dates: start: 20190906, end: 20190906
  9. HERCEPTIN [Suspect]
     Active Substance: TRASTUZUMAB
     Dosage: 8 MICROGRAM/KILOGRAM, Q3WK
     Route: 040
     Dates: start: 20170112, end: 20170112
  10. HERCEPTIN [Suspect]
     Active Substance: TRASTUZUMAB
     Dosage: 6 MICROGRAM/KILOGRAM, Q3WK
     Route: 040
     Dates: start: 20170927, end: 20180108
  11. HERCEPTIN [Suspect]
     Active Substance: TRASTUZUMAB
     Dosage: 6 MICROGRAM/KILOGRAM, Q3WK
     Route: 040
     Dates: start: 20190906, end: 20210927
  12. HERCEPTIN [Suspect]
     Active Substance: TRASTUZUMAB
     Dosage: 8 MICROGRAM/KILOGRAM, Q3WK
     Route: 040
     Dates: start: 20161020, end: 20161020
  13. HERCEPTIN [Suspect]
     Active Substance: TRASTUZUMAB
     Dosage: 6 MICROGRAM/KILOGRAM, Q3WK
     Route: 040
     Dates: start: 20190906
  14. HERCEPTIN [Suspect]
     Active Substance: TRASTUZUMAB
     Dosage: 6 MICROGRAM/KILOGRAM, Q3WK, MOST RECENT DOSE PRIOR TO THE EVENT: 02/FEB/2017
     Route: 040
     Dates: start: 20170227, end: 20180108
  15. HERCEPTIN [Suspect]
     Active Substance: TRASTUZUMAB
     Dosage: 8 MICROGRAM/KILOGRAM, Q3WK
     Route: 040
     Dates: start: 20170112, end: 20170112
  16. HERCEPTIN [Suspect]
     Active Substance: TRASTUZUMAB
     Dosage: 6 MICROGRAM/KILOGRAM, Q3WK
     Route: 040
     Dates: start: 20210929
  17. HERCEPTIN [Suspect]
     Active Substance: TRASTUZUMAB
     Dosage: 6 MICROGRAM/KILOGRAM, Q3WK
     Route: 040
     Dates: start: 20210929, end: 20220930
  18. CYTOXAN [Suspect]
     Active Substance: CYCLOPHOSPHAMIDE
     Indication: HER2 positive breast cancer
     Dosage: 500 MICROGRAM/SQ. METER, QD FREQUENCY TEXT:ONCE
     Route: 040
     Dates: start: 20161005, end: 20161005
  19. CYTOXAN [Suspect]
     Active Substance: CYCLOPHOSPHAMIDE
     Indication: Breast cancer metastatic
     Dosage: 500 MICROGRAM/SQ. METER, QD CUMULATIVE DOSE 500 UG/M2
     Route: 040
  20. CYTOXAN [Suspect]
     Active Substance: CYCLOPHOSPHAMIDE
     Indication: Breast cancer metastatic
     Dosage: UNK
     Route: 040
  21. CYTOXAN [Suspect]
     Active Substance: CYCLOPHOSPHAMIDE
     Indication: Breast cancer metastatic
  22. CAPECITABINE [Suspect]
     Active Substance: CAPECITABINE
     Indication: HER2 positive breast cancer
     Dosage: 500 MILLIGRAM FREQUENCY TEXT: OTHER CUMULATIVE DOSE 1461000 MG
     Route: 048
     Dates: start: 20220930, end: 20221024
  23. CAPECITABINE [Suspect]
     Active Substance: CAPECITABINE
     Indication: Breast cancer metastatic
     Dosage: 1000 MILLIGRAM, BID
     Route: 048
     Dates: start: 20210904, end: 20210927
  24. CAPECITABINE [Suspect]
     Active Substance: CAPECITABINE
     Indication: Breast cancer metastatic
     Dosage: 1000 MILLIGRAM, Q12H
     Route: 048
     Dates: start: 20210929, end: 20211114
  25. CAPECITABINE [Suspect]
     Active Substance: CAPECITABINE
     Dosage: 1500 MILLIGRAM, Q12H CUMULATIVE DOSE 466000 MG
     Route: 048
     Dates: start: 20210430, end: 20210903
  26. CAPECITABINE [Suspect]
     Active Substance: CAPECITABINE
     Dosage: 1000 MILLIGRAM, BID
     Route: 048
     Dates: start: 20210929, end: 20220114
  27. CAPECITABINE [Suspect]
     Active Substance: CAPECITABINE
     Dosage: 1000 MILLIGRAM, Q12H
     Route: 048
     Dates: start: 20220204, end: 20220930
  28. CAPECITABINE [Suspect]
     Active Substance: CAPECITABINE
     Dosage: 1000 MILLIGRAM, Q12H
     Route: 048
     Dates: start: 20210404, end: 20220114
  29. CAPECITABINE [Suspect]
     Active Substance: CAPECITABINE
     Dosage: 2000 MILLIGRAM, QD
     Route: 048
     Dates: start: 20220204, end: 20220930
  30. CAPECITABINE [Suspect]
     Active Substance: CAPECITABINE
     Dosage: 2000 MILLIGRAM, QD
     Route: 048
     Dates: start: 20210404, end: 20220114
  31. CAPECITABINE [Suspect]
     Active Substance: CAPECITABINE
     Dosage: 1000 MILLIGRAM, Q12H/ DAY 1- DAY 14
     Route: 048
     Dates: start: 20210904, end: 20220114
  32. CAPECITABINE [Suspect]
     Active Substance: CAPECITABINE
     Dosage: 1500 MILLIGRAM
     Route: 048
     Dates: start: 20210903
  33. CAPECITABINE [Suspect]
     Active Substance: CAPECITABINE
     Dosage: 1000 MILLIGRAM, Q12H
     Route: 048
     Dates: start: 20210404, end: 20210927
  34. KADCYLA [Suspect]
     Active Substance: ADO-TRASTUZUMAB EMTANSINE
     Indication: HER2 positive breast cancer
     Dosage: 3.6 MILLIGRAM/KILOGRAM, Q3WK CUMULATIVE DOSE 30.968 MG/KG
     Route: 040
     Dates: start: 20180205, end: 20190816
  35. KADCYLA [Suspect]
     Active Substance: ADO-TRASTUZUMAB EMTANSINE
     Indication: Breast cancer metastatic
     Dosage: 36 MILLIGRAM/KILOGRAM, Q3WK, CUMULATIVE DOSE 90 MG/KG
     Route: 040
     Dates: start: 20180205, end: 20190816
  36. KADCYLA [Suspect]
     Active Substance: ADO-TRASTUZUMAB EMTANSINE
     Indication: Breast cancer metastatic
     Dosage: 90 MILLIGRAM/KILOGRAM
     Route: 065
  37. KADCYLA [Suspect]
     Active Substance: ADO-TRASTUZUMAB EMTANSINE
     Indication: HER2 positive breast cancer
     Dosage: UNK
     Route: 065
  38. TAXOTERE [Suspect]
     Active Substance: DOCETAXEL
     Indication: Breast cancer metastatic
     Dosage: 75 MICROGRAM/SQ. METER, Q3WK CUMULATIVE DOSE 450 MG
     Route: 040
     Dates: start: 20161020, end: 20161020
  39. TAXOTERE [Suspect]
     Active Substance: DOCETAXEL
     Indication: HER2 positive breast cancer
     Dosage: 75 MICROGRAM/SQ. METER, Q3WK
     Route: 040
     Dates: start: 20161111, end: 20161111
  40. TAXOTERE [Suspect]
     Active Substance: DOCETAXEL
     Dosage: 100 MICROGRAM/SQ. METER, Q3WK
     Route: 040
     Dates: start: 20161201, end: 20170202
  41. TAXOTERE [Suspect]
     Active Substance: DOCETAXEL
     Dosage: 100 MICROGRAM/SQ. METER, Q3WK
     Route: 040
     Dates: start: 20161201, end: 20161222
  42. TAXOTERE [Suspect]
     Active Substance: DOCETAXEL
     Dosage: 100 MICROGRAM/SQ. METER, Q3WK
     Route: 040
     Dates: start: 20170112, end: 20170202
  43. ENHERTU [Suspect]
     Active Substance: FAM-TRASTUZUMAB DERUXTECAN-NXKI
     Indication: HER2 positive breast cancer
     Dosage: 5.4 MILLIGRAM/KILOGRAM, Q3WK
     Route: 040
     Dates: start: 20220924, end: 20221114
  44. ENHERTU [Suspect]
     Active Substance: FAM-TRASTUZUMAB DERUXTECAN-NXKI
     Indication: Breast cancer metastatic
     Dosage: 4.4 MILLIGRAM/KILOGRAM, Q3WK
     Route: 040
     Dates: start: 20221202, end: 20230714
  45. ENHERTU [Suspect]
     Active Substance: FAM-TRASTUZUMAB DERUXTECAN-NXKI
     Dosage: 4.4 MILLIGRAM/KILOGRAM, Q3WK
     Route: 040
     Dates: start: 20230118, end: 20230118
  46. ENHERTU [Suspect]
     Active Substance: FAM-TRASTUZUMAB DERUXTECAN-NXKI
     Dosage: 4.4 MILLIGRAM/KILOGRAM, Q3WK
     Route: 040
     Dates: start: 20230811, end: 20230811
  47. ENHERTU [Suspect]
     Active Substance: FAM-TRASTUZUMAB DERUXTECAN-NXKI
     Dosage: 5.4 MILLIGRAM/KILOGRAM, Q3WK
     Route: 040
     Dates: start: 20221114, end: 20221114
  48. ENHERTU [Suspect]
     Active Substance: FAM-TRASTUZUMAB DERUXTECAN-NXKI
     Dosage: 8 MILLIGRAM/KILOGRAM, Q3WK
     Route: 040
     Dates: start: 20161020, end: 20161020
  49. ENHERTU [Suspect]
     Active Substance: FAM-TRASTUZUMAB DERUXTECAN-NXKI
     Dosage: 8 MILLIGRAM/KILOGRAM, Q3WK
     Route: 040
     Dates: start: 20170112, end: 20170112
  50. ENHERTU [Suspect]
     Active Substance: FAM-TRASTUZUMAB DERUXTECAN-NXKI
     Dosage: 6 MILLIGRAM/KILOGRAM, Q3WK
     Route: 040
     Dates: start: 20170227, end: 20170227
  51. ENHERTU [Suspect]
     Active Substance: FAM-TRASTUZUMAB DERUXTECAN-NXKI
     Dosage: 6 MILLIGRAM/KILOGRAM, Q3WK
     Route: 040
     Dates: start: 20190906, end: 20190906
  52. ENHERTU [Suspect]
     Active Substance: FAM-TRASTUZUMAB DERUXTECAN-NXKI
     Dosage: 5.4 MILLIGRAM/KILOGRAM, Q3WK
     Route: 040
     Dates: start: 20220924, end: 20220924
  53. ENHERTU [Suspect]
     Active Substance: FAM-TRASTUZUMAB DERUXTECAN-NXKI
     Dosage: 4.4 MILLIGRAM/KILOGRAM, Q3WK
     Route: 040
     Dates: start: 20221202, end: 20221202
  54. ENHERTU [Suspect]
     Active Substance: FAM-TRASTUZUMAB DERUXTECAN-NXKI
     Dosage: 4.4 MILLIGRAM/KILOGRAM, Q3WK
     Route: 040
     Dates: start: 20230714, end: 20230714
  55. ELLENCE [Suspect]
     Active Substance: EPIRUBICIN HYDROCHLORIDE
     Indication: HER2 positive breast cancer
     Dosage: 100 MILLIGRAM/SQ. METER, QD (ONE CYCLE PER REGIMEN)
     Route: 040
     Dates: start: 20161005, end: 20161005
  56. ELLENCE [Suspect]
     Active Substance: EPIRUBICIN HYDROCHLORIDE
     Indication: Breast cancer metastatic
     Dosage: 100 MILLIGRAM/SQ. METER, QD (ONE CYCLE PER REGIMEN) CUMULATIVE DOSE 100 MG/M2
     Route: 040
  57. ELLENCE [Suspect]
     Active Substance: EPIRUBICIN HYDROCHLORIDE
     Indication: Breast cancer metastatic
  58. TUKYSA [Suspect]
     Active Substance: TUCATINIB
     Indication: HER2 positive breast cancer
     Dosage: 600 MILLIGRAM, QD CUMULATIVE DOSE 318861.3 MG
     Route: 065
     Dates: start: 20210430, end: 20221023
  59. TUKYSA [Suspect]
     Active Substance: TUCATINIB
     Indication: Breast cancer metastatic
     Dosage: 300 MILLIGRAM, Q12H
     Route: 048
     Dates: start: 20210129, end: 20221023
  60. TUKYSA [Suspect]
     Active Substance: TUCATINIB
     Dosage: 600 MILLIGRAM, QD
     Route: 048
     Dates: start: 20210929, end: 20211023
  61. TUKYSA [Suspect]
     Active Substance: TUCATINIB
     Dosage: 1200 MILLIGRAM, QD
     Route: 048
     Dates: start: 20210430
  62. TUKYSA [Suspect]
     Active Substance: TUCATINIB
     Dosage: 300 MILLIGRAM, QD
     Route: 048
     Dates: start: 20210929, end: 20211023
  63. TUKYSA [Suspect]
     Active Substance: TUCATINIB
     Dosage: UNK
     Route: 065
  64. TUKYSA [Suspect]
     Active Substance: TUCATINIB
     Dosage: UNK
     Route: 065
  65. TUKYSA [Suspect]
     Active Substance: TUCATINIB
     Dosage: UNK
     Route: 065
  66. TUKYSA [Suspect]
     Active Substance: TUCATINIB
     Dosage: 600 MILLIGRAM, QD
     Route: 048
     Dates: start: 20210430, end: 20210927
  67. DOCETAXEL [Suspect]
     Active Substance: DOCETAXEL
     Indication: HER2 positive breast cancer
     Dosage: 75 MICROGRAM/SQ. METER, Q3WK
     Route: 040
     Dates: start: 20161020, end: 20161020
  68. DOCETAXEL [Suspect]
     Active Substance: DOCETAXEL
     Indication: Breast cancer metastatic
     Dosage: 75 MICROGRAM/SQ. METER, Q3WK
     Route: 040
     Dates: start: 20161111, end: 20161111
  69. DOCETAXEL [Suspect]
     Active Substance: DOCETAXEL
     Dosage: 100 MICROGRAM/SQ. METER, Q3WK
     Route: 040
     Dates: start: 20161201, end: 20161222
  70. DOCETAXEL [Suspect]
     Active Substance: DOCETAXEL
     Dosage: 100 MICROGRAM/SQ. METER, Q3WK
     Route: 040
     Dates: start: 20170112
  71. LOPERAMIDE [Suspect]
     Active Substance: LOPERAMIDE
     Indication: Diarrhoea
     Dosage: 2 MILLIGRAM
     Route: 048
     Dates: start: 20171106, end: 20171127
  72. LOPERAMIDE [Suspect]
     Active Substance: LOPERAMIDE
     Dosage: 2 MILLIGRAM, AS NECESSARY
     Route: 048
     Dates: start: 20171127
  73. PERTUZUMAB [Suspect]
     Active Substance: PERTUZUMAB
     Indication: HER2 positive breast cancer
     Dosage: 840 MILLIGRAM, Q3WK
     Route: 040
     Dates: start: 20161020, end: 20161020
  74. PERTUZUMAB [Suspect]
     Active Substance: PERTUZUMAB
     Indication: Breast cancer metastatic
     Dosage: 420 MILLIGRAM, Q3WK
     Route: 040
     Dates: start: 20170202, end: 20180108
  75. PERTUZUMAB [Suspect]
     Active Substance: PERTUZUMAB
     Indication: Breast cancer metastatic
     Dosage: 420 MILLIGRAM, Q3WK
     Route: 040
     Dates: start: 20190906, end: 20210409
  76. PERTUZUMAB [Suspect]
     Active Substance: PERTUZUMAB
     Dosage: 420 MILLIGRAM, Q3WK
     Route: 040
     Dates: start: 20170227, end: 20180108
  77. PERTUZUMAB [Suspect]
     Active Substance: PERTUZUMAB
     Dosage: 840 MILLIGRAM, Q3WK
     Route: 040
     Dates: start: 20170112, end: 20170112
  78. PERTUZUMAB [Suspect]
     Active Substance: PERTUZUMAB
     Dosage: 800 MILLIGRAM, Q3WK
     Route: 040
     Dates: start: 20161020, end: 20161020
  79. PERTUZUMAB [Suspect]
     Active Substance: PERTUZUMAB
     Dosage: 420 MILLIGRAM, Q3WK
     Route: 040
     Dates: start: 20170112, end: 20170112
  80. CYCLOPHOSPHAMIDE [Suspect]
     Active Substance: CYCLOPHOSPHAMIDE
     Indication: Breast cancer metastatic
     Dosage: 500 MILLIGRAM/SQ. METER, QD
     Route: 040
     Dates: start: 20161005, end: 20161005
  81. CYCLOPHOSPHAMIDE [Suspect]
     Active Substance: CYCLOPHOSPHAMIDE
     Indication: HER2 positive breast cancer
  82. XELODA [Suspect]
     Active Substance: CAPECITABINE
     Indication: HER2 positive breast cancer
     Dosage: 1500 MILLIGRAM
     Route: 048
     Dates: end: 20210903
  83. XELODA [Suspect]
     Active Substance: CAPECITABINE
     Dosage: 500 MILLIGRAM
     Route: 048
     Dates: start: 20220923, end: 20221024
  84. TUCATINIB [Suspect]
     Active Substance: TUCATINIB
     Indication: HER2 positive breast cancer
     Dosage: 600 MILLIGRAM, QD CUMULATIVE DOSE 317100 MG
     Route: 048
     Dates: start: 20210430, end: 20210927
  85. TUCATINIB [Suspect]
     Active Substance: TUCATINIB
     Dosage: 600 MILLIGRAM, QD
     Route: 048
     Dates: start: 20210929, end: 20221023
  86. TUCATINIB [Suspect]
     Active Substance: TUCATINIB
     Dosage: 300 MILLIGRAM, Q12H
     Route: 048
     Dates: start: 20210430, end: 20210927
  87. TUCATINIB [Suspect]
     Active Substance: TUCATINIB
     Dosage: 300 MILLIGRAM, QD
     Route: 048
     Dates: start: 20210129, end: 20221023
  88. TUCATINIB [Suspect]
     Active Substance: TUCATINIB
     Dosage: 600 MILLIGRAM, QD
     Route: 048
     Dates: start: 20210927
  89. TUCATINIB [Suspect]
     Active Substance: TUCATINIB
     Indication: Breast cancer metastatic
     Dosage: 300 MILLIGRAM, QD CUMULATIVE DOSE 325200 MG
     Route: 048
     Dates: start: 20210129, end: 20221023
  90. TUCATINIB [Suspect]
     Active Substance: TUCATINIB
     Indication: HER2 positive breast cancer
     Dosage: 300 MILLIGRAM, Q12H
     Route: 048
     Dates: start: 20210430, end: 20210927
  91. TUCATINIB [Suspect]
     Active Substance: TUCATINIB
     Dosage: 300 MILLIGRAM, Q12H
     Route: 048
     Dates: start: 20210929, end: 20221023
  92. TUCATINIB [Suspect]
     Active Substance: TUCATINIB
     Dosage: 600 MILLIGRAM, QD
     Route: 065
     Dates: start: 20210430, end: 20210927
  93. TUCATINIB [Suspect]
     Active Substance: TUCATINIB
     Dosage: 300 MILLIGRAM, Q12H
     Route: 065
     Dates: start: 20210927
  94. TUCATINIB [Suspect]
     Active Substance: TUCATINIB
     Dosage: 300 MILLIGRAM, Q12H
     Route: 048
     Dates: start: 20210430, end: 20221023
  95. TUCATINIB [Suspect]
     Active Substance: TUCATINIB
     Dosage: 300 MILLIGRAM, Q12H
     Route: 048
     Dates: start: 20210929
  96. FAM-TRASTUZUMAB DERUXTECAN-NXKI [Suspect]
     Active Substance: FAM-TRASTUZUMAB DERUXTECAN-NXKI
     Indication: HER2 positive breast cancer
     Dosage: 5.4 MILLIGRAM/KILOGRAM, Q3WK
     Route: 040
     Dates: start: 20220924, end: 20221114
  97. FAM-TRASTUZUMAB DERUXTECAN-NXKI [Suspect]
     Active Substance: FAM-TRASTUZUMAB DERUXTECAN-NXKI
     Dosage: 4.4 MILLIGRAM/KILOGRAM, Q3WK
     Route: 040
     Dates: start: 20221202, end: 20230714
  98. FAM-TRASTUZUMAB DERUXTECAN-NXKI [Suspect]
     Active Substance: FAM-TRASTUZUMAB DERUXTECAN-NXKI
     Dosage: 4.4 MILLIGRAM/KILOGRAM, Q3WK
     Route: 040
     Dates: start: 20230811
  99. TAZOBACTAM [Concomitant]
     Active Substance: TAZOBACTAM
     Indication: Product used for unknown indication
     Dosage: 4.5 GRAM, QD CUMULATIVE DOSE 22.5G
     Route: 042
     Dates: start: 20161208, end: 20161212
  100. HALCION [Concomitant]
     Active Substance: TRIAZOLAM
     Indication: Sleep disorder
     Dosage: UNK
     Route: 048
     Dates: start: 2016, end: 201610
  101. HALCION [Concomitant]
     Active Substance: TRIAZOLAM
     Dosage: UNK
     Route: 048
     Dates: start: 201610
  102. HALCION [Concomitant]
     Active Substance: TRIAZOLAM
     Dosage: UNK
     Route: 048
     Dates: start: 20201120
  103. LAXAGOL [Concomitant]
     Indication: Product used for unknown indication
     Dosage: UNK
     Route: 065
     Dates: start: 20170227
  104. LAXAGOL [Concomitant]
     Dosage: UNK
     Route: 065
     Dates: start: 20201120
  105. LAXAGOL [Concomitant]
     Dosage: UNK
     Route: 065
  106. LAXAGOL [Concomitant]
     Dosage: UNK
     Route: 065
  107. LAXAGOL [Concomitant]
     Dosage: UNK
     Route: 065
  108. LAXAGOL [Concomitant]
     Dosage: UNK
     Route: 065
  109. RAMIPRIL [Concomitant]
     Active Substance: RAMIPRIL
     Indication: Cardiovascular event prophylaxis
     Dosage: 2.5 MILLIGRAM, Q12H CUMULATIVE DOSE  870 MG
     Route: 048
     Dates: start: 20161112, end: 20161221
  110. RAMIPRIL [Concomitant]
     Active Substance: RAMIPRIL
     Dosage: 5 MILLIGRAM, Q12H
     Route: 048
     Dates: start: 20161222, end: 20170226
  111. RAMIPRIL [Concomitant]
     Active Substance: RAMIPRIL
     Dosage: 15 MILLIGRAM, QD
     Route: 048
     Dates: start: 20170227
  112. DEXIBUPROFEN [Concomitant]
     Active Substance: DEXIBUPROFEN
     Indication: Pain prophylaxis
     Dosage: 400 MILLIGRAM, Q8H
     Route: 048
     Dates: start: 20210312
  113. DEXIBUPROFEN [Concomitant]
     Active Substance: DEXIBUPROFEN
     Dosage: 1200 MILLIGRAM, QD
     Route: 048
     Dates: start: 20210312
  114. GUAR GUM [Concomitant]
     Active Substance: GUAR GUM
     Indication: Prophylaxis
     Dosage: UNK UNK, AS NECESSARY
     Route: 048
     Dates: start: 20161102, end: 2016
  115. AMOXICILLIN\CLAVULANATE POTASSIUM [Concomitant]
     Active Substance: AMOXICILLIN\CLAVULANATE POTASSIUM
     Indication: Product used for unknown indication
     Dosage: 1 GRAM, Q12H
     Route: 048
     Dates: start: 20161212, end: 20161216
  116. FENTANYL [Concomitant]
     Active Substance: FENTANYL
     Indication: Pain prophylaxis
     Dosage: 25 MICROGRAM, TID
     Route: 062
     Dates: start: 201706
  117. FENTANYL [Concomitant]
     Active Substance: FENTANYL
     Dosage: 75 MICROGRAM, QD
     Route: 062
     Dates: start: 201706
  118. FENTANYL [Concomitant]
     Active Substance: FENTANYL
     Dosage: 25 MICROGRAM, QD
     Route: 062
     Dates: start: 201706
  119. PERFALGAN [Concomitant]
     Active Substance: ACETAMINOPHEN
     Indication: Product used for unknown indication
     Dosage: 1 GRAM, QD CUMULATIVE DOSE 5 G
     Route: 042
     Dates: start: 20161208, end: 20161212
  120. ONDANSETRON HYDROCHLORIDE [Concomitant]
     Active Substance: ONDANSETRON HYDROCHLORIDE
     Indication: Nausea
     Dosage: 8 MILLIGRAM, AS NECESSARY
     Route: 048
     Dates: start: 20181105
  121. IMODIUM [Concomitant]
     Active Substance: LOPERAMIDE HYDROCHLORIDE
     Indication: Diarrhoea
     Dosage: 2 MILLIGRAM, AS NECESSARY
     Route: 048
     Dates: start: 20171106, end: 20171127
  122. IMODIUM [Concomitant]
     Active Substance: LOPERAMIDE HYDROCHLORIDE
     Dosage: UNK
     Route: 065
  123. MILNACIPRAN [Concomitant]
     Active Substance: MILNACIPRAN
     Indication: Product used for unknown indication
     Dosage: UNK
     Route: 065
     Dates: start: 20221123, end: 20230713
  124. ESOMEPRAZOLE [Concomitant]
     Active Substance: ESOMEPRAZOLE
     Indication: Product used for unknown indication
     Dosage: UNK
     Route: 065
     Dates: start: 20221123
  125. BISOPROLOL FUMARATE [Concomitant]
     Active Substance: BISOPROLOL FUMARATE
     Indication: Prophylaxis
     Dosage: 1.25 MILLIGRAM, QD CUMULATIVE DOSE 127.5 MG
     Route: 048
     Dates: start: 20161117, end: 20170226
  126. BISOPROLOL FUMARATE [Concomitant]
     Active Substance: BISOPROLOL FUMARATE
     Dosage: 2.5 MILLIGRAM, Q12H
     Route: 048
     Dates: start: 20170227
  127. BISOPROLOL FUMARATE [Concomitant]
     Active Substance: BISOPROLOL FUMARATE
     Dosage: UNK
     Dates: start: 20170227
  128. LASIX [Concomitant]
     Active Substance: FUROSEMIDE
     Indication: Prophylaxis
     Dosage: 40 MILLIGRAM, QD CUMULATIVE DOSE 120 MG
     Route: 042
     Dates: start: 20161112, end: 20161114
  129. LASIX [Concomitant]
     Active Substance: FUROSEMIDE
     Dosage: 30 MILLIGRAM, QD (120 MG)
     Route: 048
     Dates: start: 20161114, end: 201611
  130. METOCLOPRAMIDE [Concomitant]
     Active Substance: METOCLOPRAMIDE
     Indication: Prophylaxis of nausea and vomiting
     Dosage: 10 MILLIGRAM, Q3WK
     Route: 042
     Dates: start: 20180205, end: 20190816
  131. METOCLOPRAMIDE [Concomitant]
     Active Substance: METOCLOPRAMIDE
     Indication: Prophylaxis of nausea and vomiting
  132. MOVICOL [Concomitant]
     Active Substance: POLYETHYLENE GLYCOL 3350\POTASSIUM CHLORIDE\SODIUM BICARBONATE\SODIUM CHLORIDE
     Indication: Constipation prophylaxis
     Dosage: 1200 MILLIGRAM, AS NECESSARY
     Route: 048
     Dates: end: 201706
  133. CLOBAZAM [Concomitant]
     Active Substance: CLOBAZAM
     Indication: Epilepsy
     Dosage: 5 DOSAGE FORM, (5 TABLET)
     Route: 048
     Dates: start: 20220201
  134. LOPERAMIDE HYDROCHLORIDE [Concomitant]
     Active Substance: LOPERAMIDE HYDROCHLORIDE
     Indication: Diarrhoea
     Dosage: 2 MILLIGRAM
     Route: 048
     Dates: start: 20171127
  135. PANTOPRAZOLE SODIUM [Concomitant]
     Active Substance: PANTOPRAZOLE SODIUM
     Indication: Product used for unknown indication
     Dosage: 40 MILLIGRAM, Q12H CUMULATIVE DOSE 2720 MG
     Route: 042
     Dates: start: 20161010, end: 20161018
  136. PANTOPRAZOLE SODIUM [Concomitant]
     Active Substance: PANTOPRAZOLE SODIUM
     Indication: Product used for unknown indication
     Dosage: 40 MILLIGRAM, BID
     Route: 048
     Dates: start: 20161018, end: 20161030
  137. PANTOPRAZOLE SODIUM [Concomitant]
     Active Substance: PANTOPRAZOLE SODIUM
     Dosage: 40 MILLIGRAM, QD
     Route: 048
     Dates: start: 20161031, end: 20161123
  138. GLANDOMED [Concomitant]
     Indication: Product used for unknown indication
     Dosage: UNK UNK, AS NECESSARY
     Route: 061
     Dates: start: 20161208, end: 20161222
  139. SERTRALINE HYDROCHLORIDE [Concomitant]
     Active Substance: SERTRALINE HYDROCHLORIDE
     Indication: Product used for unknown indication
     Dosage: 50 MILLIGRAM
     Route: 048
     Dates: start: 201710
  140. SERTRALINE HYDROCHLORIDE [Concomitant]
     Active Substance: SERTRALINE HYDROCHLORIDE
     Indication: Product used for unknown indication
  141. HYDROMORPHONE HYDROCHLORIDE [Concomitant]
     Active Substance: HYDROMORPHONE HYDROCHLORIDE
     Indication: Pain prophylaxis
     Dosage: 1.3 MILLIGRAM CUMULATIVE DOSE 60MG
     Route: 048
     Dates: start: 201706, end: 20210309
  142. HYDROMORPHONE HYDROCHLORIDE [Concomitant]
     Active Substance: HYDROMORPHONE HYDROCHLORIDE
     Dosage: 2 MILLIGRAM
     Route: 048
     Dates: start: 20190816, end: 20210326
  143. HYDROMORPHONE HYDROCHLORIDE [Concomitant]
     Active Substance: HYDROMORPHONE HYDROCHLORIDE
     Dosage: 2 MILLIGRAM, Q12H
     Route: 048
     Dates: start: 20210326, end: 20210409
  144. HYDROMORPHONE HYDROCHLORIDE [Concomitant]
     Active Substance: HYDROMORPHONE HYDROCHLORIDE
     Dosage: 4 MILLIGRAM, BID
     Route: 048
     Dates: start: 20210410
  145. HYDROMORPHONE HYDROCHLORIDE [Concomitant]
     Active Substance: HYDROMORPHONE HYDROCHLORIDE
     Dosage: UNK
     Dates: start: 20210309
  146. LIPEGFILGRASTIM [Concomitant]
     Active Substance: LIPEGFILGRASTIM
     Indication: Prophylaxis
     Dosage: 6 MILLIGRAM, Q3WK CUMULATIVE DOSE MG
     Route: 058
     Dates: start: 20170113, end: 20170203
  147. SERTRALINE [Concomitant]
     Active Substance: SERTRALINE HYDROCHLORIDE
     Indication: Depression
     Dosage: 25 MILLIGRAM, AS NECESSARY
     Route: 048
     Dates: start: 20171016
  148. SERTRALINE [Concomitant]
     Active Substance: SERTRALINE HYDROCHLORIDE
     Indication: Depression
     Dosage: 25 MILLIGRAM
     Route: 048
     Dates: start: 20230714
  149. SERTRALINE [Concomitant]
     Active Substance: SERTRALINE HYDROCHLORIDE
     Dosage: UNK
     Route: 048
     Dates: start: 20230714
  150. SUCRALAN [Concomitant]
     Indication: Prophylaxis
     Dosage: 5 MILLILITRE IN 1 AS NECESSARY
     Route: 048
     Dates: start: 201612, end: 20161212
  151. SUCRALAN [Concomitant]
     Dosage: 5 MILLILITER, AS NECESSARY
     Route: 048
     Dates: start: 20161215
  152. LEVOCETIRIZINE DIHYDROCHLORIDE [Concomitant]
     Active Substance: LEVOCETIRIZINE DIHYDROCHLORIDE
     Indication: Product used for unknown indication
     Dosage: UNK
     Route: 065
     Dates: start: 20220801
  153. APREPITANT [Concomitant]
     Active Substance: APREPITANT
     Indication: Nausea
     Dosage: UNK
     Route: 065
     Dates: start: 20221123
  154. APREPITANT [Concomitant]
     Active Substance: APREPITANT
     Dosage: UNK
     Route: 065
     Dates: start: 20221202
  155. FILGRASTIM [Concomitant]
     Active Substance: FILGRASTIM
     Indication: Product used for unknown indication
     Dosage: 48 INTERNATIONAL UNIT, QWK
     Route: 058
     Dates: start: 20161208, end: 20161211
  156. FILGRASTIM [Concomitant]
     Active Substance: FILGRASTIM
     Indication: Product used for unknown indication
  157. ZOFRAN [Concomitant]
     Active Substance: ONDANSETRON HYDROCHLORIDE
     Indication: Prophylaxis of nausea and vomiting
     Dosage: 8 MILLIGRAM, AS NECESSARY
     Route: 048
     Dates: start: 20161123, end: 20170204
  158. ZOFRAN [Concomitant]
     Active Substance: ONDANSETRON HYDROCHLORIDE
     Indication: Prophylaxis of nausea and vomiting
  159. TRAZODONE HYDROCHLORIDE [Concomitant]
     Active Substance: TRAZODONE HYDROCHLORIDE
     Indication: Product used for unknown indication
     Dosage: UNK
     Route: 065
     Dates: start: 20221129
  160. TRAZODONE HYDROCHLORIDE [Concomitant]
     Active Substance: TRAZODONE HYDROCHLORIDE
     Indication: Product used for unknown indication
  161. XARELTO [Concomitant]
     Active Substance: RIVAROXABAN
     Indication: Product used for unknown indication
     Dosage: 10 MILLIGRAM, QD
     Route: 048
     Dates: start: 20161026, end: 201612
  162. XARELTO [Concomitant]
     Active Substance: RIVAROXABAN
     Indication: Product used for unknown indication
  163. HALDOL [Concomitant]
     Active Substance: HALOPERIDOL
     Indication: Prophylaxis of nausea and vomiting
     Dosage: 8 GTT DROPS, QD (4 GTT, BID
     Route: 048
     Dates: start: 201702
  164. HALDOL [Concomitant]
     Active Substance: HALOPERIDOL
     Indication: Prophylaxis of nausea and vomiting
  165. LEVETIRACETAM [Concomitant]
     Active Substance: LEVETIRACETAM
     Indication: Epilepsy
     Dosage: 750 MILLIGRAM, Q12H
     Route: 048
     Dates: start: 20220201
  166. LEVETIRACETAM [Concomitant]
     Active Substance: LEVETIRACETAM
     Dosage: UNK
     Route: 065
  167. Paspertin [Concomitant]
     Indication: Nausea
     Dosage: 3 AMPULE
     Route: 042
     Dates: start: 20161113
  168. CEOLAT [Concomitant]
     Indication: Prophylaxis of nausea and vomiting
     Dosage: 10 MILLILITER, AS NECESSARY
     Route: 048
     Dates: start: 20161112, end: 201702
  169. CEOLAT [Concomitant]
     Indication: Prophylaxis of nausea and vomiting
  170. KCL [Concomitant]
     Active Substance: POTASSIUM CHLORIDE
     Indication: Prophylaxis
     Dosage: 1200 MILLIGRAM, Q12H
     Route: 048
     Dates: start: 20161117, end: 201702
  171. VIMPAT [Concomitant]
     Active Substance: LACOSAMIDE
     Indication: Product used for unknown indication
     Dosage: UNK
     Route: 065
     Dates: start: 20230602
  172. DEXAMETHASONE [Concomitant]
     Active Substance: DEXAMETHASONE
     Indication: Prophylaxis
     Dosage: 8 MILLIGRAM, Q12H CUMULATIVE DOSE 128 MG
     Route: 048
     Dates: start: 20161202, end: 20161203
  173. DEXAMETHASONE [Concomitant]
     Active Substance: DEXAMETHASONE
     Dosage: 8 MILLIGRAM, Q12H
     Route: 048
     Dates: start: 20180117, end: 20180122
  174. ALPRAZOLAM [Concomitant]
     Active Substance: ALPRAZOLAM
     Indication: Product used for unknown indication
     Dosage: 0.5 MILLIGRAM, AS NECESSARY
     Route: 048
     Dates: start: 20161117
  175. ALPRAZOLAM [Concomitant]
     Active Substance: ALPRAZOLAM
     Indication: Product used for unknown indication
  176. IBUPROFEN [Concomitant]
     Active Substance: IBUPROFEN
     Indication: Product used for unknown indication
     Route: 065
  177. IBUPROFEN [Concomitant]
     Active Substance: IBUPROFEN
     Indication: Product used for unknown indication
  178. CALCIUM CARBONATE\CHOLECALCIFEROL [Concomitant]
     Active Substance: CALCIUM CARBONATE\CHOLECALCIFEROL
     Indication: Prophylaxis
     Dosage: 1 DOSAGE FORM, Q12H
     Route: 048
     Dates: start: 20161112
  179. CALCIUM CARBONATE\CHOLECALCIFEROL [Concomitant]
     Active Substance: CALCIUM CARBONATE\CHOLECALCIFEROL
     Indication: Osteoporosis prophylaxis
  180. SPIRONOLACTONE [Concomitant]
     Active Substance: SPIRONOLACTONE
     Indication: Product used for unknown indication
     Dosage: UNK
     Route: 065
     Dates: start: 20230811
  181. SPIRONOLACTONE [Concomitant]
     Active Substance: SPIRONOLACTONE
     Indication: Product used for unknown indication
  182. FILGRASTIM [Concomitant]
     Active Substance: FILGRASTIM
     Indication: Product used for unknown indication
     Dosage: UNK
     Route: 065
     Dates: start: 20230811, end: 20230924
  183. FILGRASTIM [Concomitant]
     Active Substance: FILGRASTIM
     Indication: Product used for unknown indication
  184. AMOXICILLIN\CLAVULANATE POTASSIUM [Concomitant]
     Active Substance: AMOXICILLIN\CLAVULANATE POTASSIUM
     Indication: Product used for unknown indication
     Dosage: 1 GRAM, Q12H
     Route: 048
     Dates: start: 20161212, end: 20161216
  185. DEXAMETHASONE [Concomitant]
     Active Substance: DEXAMETHASONE
     Indication: Headache
     Dosage: 8 MILLIGRAM, QD, CUMULATIVE DOSE 120 MG
     Route: 048
     Dates: start: 20161202, end: 20161203
  186. DEXAMETHASONE [Concomitant]
     Active Substance: DEXAMETHASONE
     Dosage: 8 MILLIGRAM, QD
     Route: 065
     Dates: start: 20180117, end: 20180122
  187. DEXAMETHASONE [Concomitant]
     Active Substance: DEXAMETHASONE
     Dosage: 8 MILLIGRAM, QD CUMULATIVE DOSE 152 MG
     Route: 048
     Dates: start: 20180817, end: 20180831
  188. DEXAMETHASONE [Concomitant]
     Active Substance: DEXAMETHASONE
     Dosage: UNK
     Route: 065
     Dates: start: 20221123, end: 20221215
  189. DEXAMETHASONE [Concomitant]
     Active Substance: DEXAMETHASONE
     Dosage: 152 MILLIGRAM
     Route: 065
     Dates: start: 20221123, end: 20221215
  190. CERNEVIT [Concomitant]
     Active Substance: VITAMINS
     Indication: Product used for unknown indication
     Dosage: UNK
  191. CERNEVIT [Concomitant]
     Active Substance: VITAMINS
     Indication: Product used for unknown indication
  192. ACETAMINOPHEN [Concomitant]
     Active Substance: ACETAMINOPHEN
     Indication: Product used for unknown indication
     Route: 065
  193. ACETAMINOPHEN [Concomitant]
     Active Substance: ACETAMINOPHEN
     Indication: Product used for unknown indication
  194. AMINO ACIDS\DEXTROSE\ELECTROLYTES NOS\SOYBEAN OIL [Concomitant]
     Active Substance: AMINO ACIDS\DEXTROSE\ELECTROLYTES NOS\SOYBEAN OIL
     Indication: Product used for unknown indication
     Route: 065
  195. MYSOLINE [Concomitant]
     Active Substance: PRIMIDONE
     Indication: Product used for unknown indication
     Route: 065
  196. MYSOLINE [Concomitant]
     Active Substance: PRIMIDONE
     Indication: Product used for unknown indication
  197. TRACEL [Concomitant]
     Indication: Product used for unknown indication
     Route: 065
  198. TRACEL [Concomitant]
     Indication: Product used for unknown indication
  199. CALCIUM CARBONATE\VITAMIN D [Concomitant]
     Active Substance: CALCIUM CARBONATE\VITAMIN D
     Indication: Prophylaxis
     Dosage: 2 DOSAGE FORM, QD (1 DF TWICE DAILY)
     Route: 048
     Dates: start: 20161112
  200. MAGNESIUM CARBONATE\MAGNESIUM OXIDE [Concomitant]
     Active Substance: MAGNESIUM CARBONATE\MAGNESIUM OXIDE
     Indication: Product used for unknown indication
     Route: 065
  201. MAGNESIUM CARBONATE\MAGNESIUM OXIDE [Concomitant]
     Active Substance: MAGNESIUM CARBONATE\MAGNESIUM OXIDE
     Indication: Product used for unknown indication
  202. OSELTAMIVIR [Concomitant]
     Active Substance: OSELTAMIVIR
     Indication: Product used for unknown indication
  203. OSELTAMIVIR [Concomitant]
     Active Substance: OSELTAMIVIR
     Indication: Product used for unknown indication
  204. BISOPROLOL FUMARATE [Concomitant]
     Active Substance: BISOPROLOL FUMARATE
     Indication: Prophylaxis
     Dosage: 1.25 MILLIGRAM, QD CUMULATIVE DOSE 127.5 MG
     Route: 048
     Dates: start: 20161117, end: 20170226
  205. BISOPROLOL FUMARATE [Concomitant]
     Active Substance: BISOPROLOL FUMARATE
     Indication: No adverse event
     Dosage: 2.5 MILLIGRAM, Q12H
     Route: 048
     Dates: start: 20170227
  206. BISOPROLOL FUMARATE [Concomitant]
     Active Substance: BISOPROLOL FUMARATE
     Indication: Product used for unknown indication
  207. LEVOCETIRIZINE [Concomitant]
     Active Substance: LEVOCETIRIZINE
     Indication: Product used for unknown indication
     Dosage: UNK
     Route: 065
     Dates: start: 20220801
  208. LEVOCETIRIZINE [Concomitant]
     Active Substance: LEVOCETIRIZINE
     Indication: Epilepsy

REACTIONS (16)
  - Nausea [Recovered/Resolved]
  - Dehydration [Recovered/Resolved]
  - White blood cell count decreased [Recovered/Resolved]
  - White blood cell count decreased [Not Recovered/Not Resolved]
  - Nausea [Recovered/Resolved]
  - Thrombocytopenia [Recovering/Resolving]
  - Hemianopia [Recovered/Resolved]
  - Headache [Recovered/Resolved]
  - Thrombocytopenia [Recovering/Resolving]
  - White blood cell count decreased [Not Recovered/Not Resolved]
  - White blood cell count decreased [Recovered/Resolved]
  - Headache [Recovered/Resolved]
  - Skin fissures [Recovered/Resolved]
  - Abdominal pain [Recovered/Resolved]
  - Intentional product use issue [Unknown]
  - Intentional product use issue [Unknown]

NARRATIVE: CASE EVENT DATE: 20180522
